FAERS Safety Report 9744015 (Version 2)
Quarter: 2013Q4

REPORT INFORMATION
  Report Type: Spontaneous
  Country: US (occurrence: US)
  Receive Date: 20131210
  Receipt Date: 20131212
  Transmission Date: 20140711
  Serious: Yes (Other)
  Sender: FDA-Public Use
  Company Number: US-TEVA-383868USA

PATIENT
  Age: 27 Year
  Sex: Female
  Weight: 59.93 kg

DRUGS (3)
  1. PARAGARD 380A [Suspect]
     Indication: CONTRACEPTION
     Route: 015
     Dates: start: 20130117, end: 20130128
  2. AMOXICILLIN [Concomitant]
  3. FLAGYL [Concomitant]

REACTIONS (4)
  - Device dislocation [Recovered/Resolved]
  - Abdominal pain [Recovered/Resolved]
  - Back pain [Recovered/Resolved]
  - Abdominal distension [Recovered/Resolved]
